FAERS Safety Report 16698088 (Version 1)
Quarter: 2019Q3

REPORT INFORMATION
  Report Type: Spontaneous
  Country: JP (occurrence: JP)
  Receive Date: 20190813
  Receipt Date: 20190813
  Transmission Date: 20191004
  Serious: Yes (Other)
  Sender: FDA-Public Use
  Company Number: JP-PFIZER INC-2019272564

PATIENT
  Age: 48 Year
  Sex: Male

DRUGS (3)
  1. LYRICA [Suspect]
     Active Substance: PREGABALIN
     Indication: INTERVERTEBRAL DISC PROTRUSION
     Dosage: 75 MG, 1X/DAY
     Route: 048
     Dates: start: 20190316, end: 20190624
  2. LYRICA [Suspect]
     Active Substance: PREGABALIN
     Indication: NEURALGIA
     Dosage: 50 MG, 1X/DAY (AT NIGHT)
     Route: 048
     Dates: start: 20190201, end: 20190315
  3. LYRICA [Suspect]
     Active Substance: PREGABALIN
     Indication: PARALYSIS

REACTIONS (3)
  - Cataract [Unknown]
  - Glaucoma [Unknown]
  - Vision blurred [Unknown]

NARRATIVE: CASE EVENT DATE: 20190624
